FAERS Safety Report 23932265 (Version 1)
Quarter: 2024Q2

REPORT INFORMATION
  Report Type: Spontaneous
  Country: US (occurrence: US)
  Receive Date: 20240603
  Receipt Date: 20240603
  Transmission Date: 20240716
  Serious: Yes (Life-Threatening, Hospitalization)
  Sender: FDA-Public Use
  Company Number: US-MLMSERVICE-20240513-PI059945-00204-1

PATIENT
  Age: 27 Year
  Sex: Male

DRUGS (1)
  1. LOPERAMIDE HYDROCHLORIDE [Suspect]
     Active Substance: LOPERAMIDE HYDROCHLORIDE
     Indication: Product used for unknown indication
     Dosage: 96 MG, UNKNOWN
     Route: 048

REACTIONS (9)
  - Pancreatitis [Unknown]
  - Respiratory alkalosis [Recovering/Resolving]
  - Cardiac failure high output [Recovering/Resolving]
  - Acute kidney injury [Recovering/Resolving]
  - Metabolic acidosis [Unknown]
  - Distributive shock [Recovering/Resolving]
  - Lactic acidosis [Unknown]
  - Incorrect dose administered [Recovering/Resolving]
  - Multiple organ dysfunction syndrome [Recovering/Resolving]

NARRATIVE: CASE EVENT DATE: 20230101
